FAERS Safety Report 20437052 (Version 1)
Quarter: 2022Q1

REPORT INFORMATION
  Report Type: Spontaneous
  Country: GR (occurrence: GR)
  Receive Date: 20220207
  Receipt Date: 20220207
  Transmission Date: 20220423
  Serious: Yes (Hospitalization)
  Sender: FDA-Public Use
  Company Number: GR-MYLANLABS-2022M1009598

PATIENT
  Age: 9 Year
  Sex: Male

DRUGS (2)
  1. CLARITHROMYCIN [Suspect]
     Active Substance: CLARITHROMYCIN
     Indication: Actinomycotic skin infection
     Dosage: UNK, FOR 15 DAYS
  2. CEFUROXIME [Suspect]
     Active Substance: CEFUROXIME
     Indication: Actinomycotic skin infection
     Dosage: UNK, FOR 10 DAYS

REACTIONS (1)
  - Drug ineffective [Unknown]
